FAERS Safety Report 16754712 (Version 1)
Quarter: 2019Q4

REPORT INFORMATION
  Report Type: Spontaneous
  Country: US (occurrence: US)
  Receive Date: 20190828
  Receipt Date: 20190828
  Transmission Date: 20200122
  Serious: Yes (Disabling, Other)
  Sender: FDA-Public Use
  Company Number: None

PATIENT
  Age: 53 Year
  Sex: Female
  Weight: 67.5 kg

DRUGS (1)
  1. HYDROCODONE [Suspect]
     Active Substance: HYDROCODONE
     Indication: PAIN

REACTIONS (12)
  - Quality of life decreased [None]
  - Sleep disorder [None]
  - Intervertebral disc degeneration [None]
  - Disease progression [None]
  - Fibromyalgia [None]
  - Mobility decreased [None]
  - Systemic lupus erythematosus [None]
  - Walking aid user [None]
  - Pain [None]
  - Therapy cessation [None]
  - Wheelchair user [None]
  - Osteoarthritis [None]

NARRATIVE: CASE EVENT DATE: 20171120
